FAERS Safety Report 4771417-0 (Version None)
Quarter: 2005Q3

REPORT INFORMATION
  Report Type: 
  Country: None (occurrence: None)
  Receive Date: 20050915
  Receipt Date: 20050829
  Transmission Date: 20060218
  Serious: No
  Sender: FDA-Public Use
  Company Number: DSA_26800_2005

PATIENT
  Age: 55 Year
  Sex: Female
  Weight: 62.5964 kg

DRUGS (3)
  1. ATIVAN [Suspect]
     Indication: NYSTAGMUS
     Dosage: 0.5 MG Q DAY PO
     Route: 048
     Dates: start: 20050716, end: 20050721
  2. ATIVAN [Suspect]
     Indication: VERTIGO
     Dosage: 0.5 MG Q DAY PO
     Route: 048
     Dates: start: 20050716, end: 20050721
  3. ATIVAN [Suspect]
     Dosage: 0.5 MG Q DAY PO
     Route: 048

REACTIONS (5)
  - DRUG WITHDRAWAL SYNDROME [None]
  - FEELING ABNORMAL [None]
  - NERVOUSNESS [None]
  - PHARMACEUTICAL PRODUCT COMPLAINT [None]
  - POOR QUALITY DRUG ADMINISTERED [None]
